FAERS Safety Report 5524813-8 (Version None)
Quarter: 2007Q4

REPORT INFORMATION
  Report Type: 
  Country: None (occurrence: None)
  Receive Date: 20071116
  Receipt Date: 20071108
  Transmission Date: 20080405
  Serious: Yes (Other)
  Sender: FDA-Public Use
  Company Number: 2007334709

PATIENT
  Sex: Female

DRUGS (3)
  1. MINOXIDIL [Suspect]
     Indication: ALOPECIA
     Dosage: 1.5ML ONCE IN THE AFTERNOON DAILY (1 IN 1 D), TOPICAL
     Route: 061
     Dates: start: 20070901, end: 20071010
  2. CORTISONE ACETATE [Suspect]
     Dosage: UNSPECIFIED IN THE MORNING, TOPICAL
     Route: 061
     Dates: start: 20070901, end: 20071010
  3. CONTRACEPTIVE, UNSPECIFIED (CONTRACEPTIVE, UNSPECIFIED) [Suspect]
     Indication: CONTRACEPTION
     Dosage: ORAL
     Route: 048
     Dates: start: 20070901, end: 20071001

REACTIONS (2)
  - HYPERTRICHOSIS [None]
  - THYROIDITIS [None]
